FAERS Safety Report 8906760 (Version 1)
Quarter: 2012Q4

REPORT INFORMATION
  Report Type: 
  Country: CA (occurrence: CA)
  Receive Date: 20121114
  Receipt Date: 20121114
  Transmission Date: 20130627
  Serious: Yes (Life-Threatening)
  Sender: FDA-Public Use
  Company Number: PHHY2012CA104743

PATIENT
  Sex: Female

DRUGS (1)
  1. ACLASTA [Suspect]
     Indication: UPPER LIMB FRACTURE

REACTIONS (3)
  - Cardiac disorder [Unknown]
  - Tremor [Unknown]
  - Pyrexia [Unknown]
